FAERS Safety Report 24918511 (Version 2)
Quarter: 2025Q1

REPORT INFORMATION
  Report Type: Report from Study
  Country: US (occurrence: US)
  Receive Date: 20250203
  Receipt Date: 20250217
  Transmission Date: 20250408
  Serious: Yes (Other)
  Sender: ABBVIE
  Company Number: US-ABBVIE-6110711

PATIENT
  Age: 65 Year
  Sex: Female

DRUGS (1)
  1. RINVOQ [Suspect]
     Active Substance: UPADACITINIB
     Indication: Product used for unknown indication
     Route: 048
     Dates: start: 20240121

REACTIONS (4)
  - Liver operation [Recovered/Resolved with Sequelae]
  - Dental care [Unknown]
  - Memory impairment [Unknown]
  - Pancreatitis relapsing [Recovered/Resolved with Sequelae]

NARRATIVE: CASE EVENT DATE: 20241101
